FAERS Safety Report 6935870-6 (Version None)
Quarter: 2010Q3

REPORT INFORMATION
  Report Type: 
  Country: None (occurrence: None)
  Receive Date: 20100823
  Receipt Date: 20100809
  Transmission Date: 20110219
  Serious: Yes (Hospitalization)
  Sender: FDA-Public Use
  Company Number: ES-ELI_LILLY_AND_COMPANY-ES201008002598

PATIENT
  Sex: Female

DRUGS (8)
  1. FORTEO [Suspect]
     Indication: OSTEOPOROSIS
     Dosage: 20 UG, DAILY (1/D)
     Route: 058
  2. BOREA [Concomitant]
     Indication: INCREASED APPETITE
     Dosage: 1 TABLET, DAILY
     Route: 048
  3. SEGURIL [Concomitant]
     Indication: HYPERTENSION
     Dosage: 1 TABLET, DAILY (1/D)
     Route: 048
  4. APROVEL [Concomitant]
     Indication: HYPERTENSION
     Dosage: 1 TABLET, DAILY (1/D)
     Route: 048
  5. ASPIRIN [Concomitant]
     Dosage: 1 TABLET, DAILY (1/D)
     Route: 048
  6. EVISTA [Concomitant]
     Dosage: 1 TABLET, DAILY (1/D)
     Route: 048
  7. PRAVASTATIN [Concomitant]
     Indication: HYPERLIPIDAEMIA
     Dosage: 1 TABLET, DAILY (1/D)
     Route: 048
  8. LANTUS [Concomitant]
     Indication: DIABETES MELLITUS
     Dosage: 16 IU, DAILY (1/D)
     Route: 058

REACTIONS (3)
  - CEREBRAL INFARCTION [None]
  - INCREASED BRONCHIAL SECRETION [None]
  - TACHYCARDIA [None]
